FAERS Safety Report 18443826 (Version 1)
Quarter: 2020Q4

REPORT INFORMATION
  Report Type: Spontaneous
  Country: CO (occurrence: CO)
  Receive Date: 20201030
  Receipt Date: 20201030
  Transmission Date: 20210114
  Serious: Yes (Other)
  Sender: FDA-Public Use
  Company Number: CO-ROCHE-2702166

PATIENT
  Sex: Female

DRUGS (1)
  1. GAZYVA [Suspect]
     Active Substance: OBINUTUZUMAB
     Indication: CHRONIC LYMPHOCYTIC LEUKAEMIA
     Dosage: DOSE AND FREQUENCY WERE NOT REPORTED
     Route: 042

REACTIONS (2)
  - Pulmonary fibrosis [Unknown]
  - COVID-19 [Unknown]
